FAERS Safety Report 9866879 (Version 1)
Quarter: 2014Q1

REPORT INFORMATION
  Report Type: Spontaneous
  Country: US (occurrence: None)
  Receive Date: 20140203
  Receipt Date: 20140203
  Transmission Date: 20141002
  Serious: No
  Sender: FDA-Public Use
  Company Number: None

PATIENT
  Age: 45 Year
  Sex: Male
  Weight: 81.65 kg

DRUGS (1)
  1. PROPECIA [Suspect]
     Indication: ALOPECIA
     Dosage: TAKEN BY MOUTH
     Dates: start: 19990216, end: 19990516

REACTIONS (7)
  - Bladder cancer [None]
  - Male sexual dysfunction [None]
  - Penile size reduced [None]
  - Body mass index decreased [None]
  - Loss of libido [None]
  - Cognitive disorder [None]
  - Mental impairment [None]
